FAERS Safety Report 15585588 (Version 1)
Quarter: 2018Q4

REPORT INFORMATION
  Report Type: Spontaneous
  Country: US (occurrence: US)
  Receive Date: 20181104
  Receipt Date: 20181104
  Transmission Date: 20190205
  Serious: Yes (Other)
  Sender: FDA-Public Use
  Company Number: US-PRINSTON PHARMACEUTICAL INC.-2018PRN00457

PATIENT
  Age: 68 Year
  Sex: Male
  Weight: 95.24 kg

DRUGS (12)
  1. ATORVASTATIN [Concomitant]
     Active Substance: ATORVASTATIN
  2. HYDROCHLOROTHIAZIDE. [Concomitant]
     Active Substance: HYDROCHLOROTHIAZIDE
  3. PAROXETINE. [Suspect]
     Active Substance: PAROXETINE
     Indication: OBSESSIVE-COMPULSIVE DISORDER
     Dosage: 20 MG, 1X/DAY
     Route: 048
     Dates: start: 1990, end: 201807
  4. PAROXETINE. [Suspect]
     Active Substance: PAROXETINE
     Dosage: 20 MG, 1X/DAY
     Route: 048
     Dates: start: 201807
  5. PAROXETINE (ZYDUS) [Suspect]
     Active Substance: PAROXETINE
     Indication: OBSESSIVE-COMPULSIVE DISORDER
     Dosage: UNK
     Dates: start: 201807, end: 201807
  6. BACLOFEN. [Concomitant]
     Active Substance: BACLOFEN
  7. METFORMIN [Concomitant]
     Active Substance: METFORMIN HYDROCHLORIDE
  8. BENICAR [Concomitant]
     Active Substance: OLMESARTAN MEDOXOMIL
  9. VALERIAN [Concomitant]
     Active Substance: VALERIAN
  10. PAXIL [Suspect]
     Active Substance: PAROXETINE HYDROCHLORIDE
     Indication: OBSESSIVE-COMPULSIVE DISORDER
     Dosage: 20 MG, 1X/DAY
     Route: 048
     Dates: start: 1990
  11. DOXAZOSIN [Concomitant]
     Active Substance: DOXAZOSIN\DOXAZOSIN MESYLATE
  12. GLIPIZIDE. [Concomitant]
     Active Substance: GLIPIZIDE

REACTIONS (5)
  - Dyspnoea [Not Recovered/Not Resolved]
  - Therapy cessation [Recovered/Resolved]
  - Depressed mood [Not Recovered/Not Resolved]
  - Insomnia [Not Recovered/Not Resolved]
  - Fatigue [Not Recovered/Not Resolved]

NARRATIVE: CASE EVENT DATE: 201807
